FAERS Safety Report 21279023 (Version 1)
Quarter: 2022Q3

REPORT INFORMATION
  Report Type: Spontaneous
  Country: EG (occurrence: EG)
  Receive Date: 20220901
  Receipt Date: 20220901
  Transmission Date: 20221027
  Serious: Yes (Other)
  Sender: FDA-Public Use
  Company Number: EG-NOVARTISPH-NVSC2022EG195163

PATIENT
  Age: 47 Year
  Sex: Female

DRUGS (8)
  1. GILENYA [Suspect]
     Active Substance: FINGOLIMOD HYDROCHLORIDE
     Indication: Multiple sclerosis
     Dosage: 0.5 MG, QD
     Route: 048
     Dates: start: 202005, end: 202009
  2. GILENYA [Suspect]
     Active Substance: FINGOLIMOD HYDROCHLORIDE
     Dosage: 0.5 MG, QD
     Route: 048
     Dates: start: 202109
  3. ADOL [Concomitant]
     Indication: Headache
     Dosage: ONE TAB OR TWO TABS PRN
     Route: 065
     Dates: start: 2021
  4. NEUROTON [Concomitant]
     Indication: Neuralgia
     Dosage: NE AMP EVERY THREE DAY PER WEEK
     Route: 030
     Dates: start: 202205
  5. NEUROVIT [Concomitant]
     Indication: Neuralgia
     Dosage: 1 DOSAGE FORM, QD
     Route: 048
  6. NEUROVIT [Concomitant]
     Indication: Neuralgia
     Dosage: ONE AMP EVERY THREE DAY PER WEEK
     Route: 030
  7. URIPAN [Concomitant]
     Indication: Bladder disorder
     Dosage: 1 DOSAGE FORM, QD
     Route: 048
     Dates: end: 202205
  8. URIPAN [Concomitant]
     Dosage: 2 DOSAGE FORM, QD
     Route: 048

REACTIONS (3)
  - Urinary incontinence [Recovering/Resolving]
  - Spinal pain [Recovered/Resolved]
  - White blood cell count decreased [Not Recovered/Not Resolved]

NARRATIVE: CASE EVENT DATE: 20220401
